FAERS Safety Report 10404436 (Version 2)
Quarter: 2014Q2

REPORT INFORMATION
  Report Type: Spontaneous
  Country: US (occurrence: None)
  Receive Date: 20140214
  Receipt Date: 20140625
  Transmission Date: 20141212
  Serious: No
  Sender: FDA-Public Use
  Company Number: A-NJ2013-92856

PATIENT
  Age: 70 Year
  Sex: Female

DRUGS (4)
  1. OPSUMIT (MACITENTAN) [Suspect]
     Indication: PRODUCT USED FOR UNKNOWN INDICATION
     Route: 048
     Dates: start: 20131205, end: 20131216
  2. REVATIO (SILDENAFIL CITRATE) [Concomitant]
  3. TYVASO (TREPROSTINIL SODIUM ) [Concomitant]
  4. WARFARIN [Concomitant]

REACTIONS (8)
  - Diarrhoea [None]
  - Decreased appetite [None]
  - Fatigue [None]
  - Asthenia [None]
  - Non-cardiac chest pain [None]
  - Headache [None]
  - Constipation [None]
  - Abdominal pain lower [None]
